FAERS Safety Report 8565782 (Version 2)
Quarter: 2013Q1

REPORT INFORMATION
  Report Type: Spontaneous
  Country: US (occurrence: None)
  Receive Date: 20120511
  Receipt Date: 20120926
  Transmission Date: 20140127
  Serious: Yes (Other)
  Sender: FDA-Public Use
  Company Number: AUR-APL-2012-02041

PATIENT
  Age: 25 Year
  Sex: Female

DRUGS (6)
  1. RIBAVIRIN [Suspect]
     Indication: PRODUCT USED FOR UNKNOWN INDICATION
     Route: 048
     Dates: start: 20110802, end: 20120105
  2. PEGASYS [Suspect]
     Indication: PRODUCT USED FOR UNKNOWN INDICATION
     Dosage: 180 MCG ONCE A WEEK SQ
     Dates: start: 20110802, end: 20120105
  3. VITAMINS [Concomitant]
  4. METHADONE HYDROCHLORIDE [Concomitant]
  5. MACROBID [Concomitant]
  6. PEGASYS [Suspect]
     Dosage: (1 WEEK)
     Route: 058
     Dates: start: 20110802, end: 20120105

REACTIONS (3)
  - Urinary tract infection [None]
  - Pregnancy [None]
  - Maternal exposure during pregnancy [None]
